FAERS Safety Report 19677347 (Version 1)
Quarter: 2021Q3

REPORT INFORMATION
  Report Type: Spontaneous
  Country: US (occurrence: US)
  Receive Date: 20210809
  Receipt Date: 20210809
  Transmission Date: 20211014
  Serious: Yes (Other)
  Sender: FDA-Public Use
  Company Number: US-INTRA-CELLULAR THERAPIES, INC.-2021ICT00357

PATIENT
  Sex: Male

DRUGS (6)
  1. CAPLYTA [Suspect]
     Active Substance: LUMATEPERONE
     Dosage: 42 MG, 1X/DAY
     Route: 048
     Dates: start: 20210512, end: 20210726
  2. HYDROXYZINE [Concomitant]
     Active Substance: HYDROXYZINE HYDROCHLORIDE
  3. LITHIUM. [Suspect]
     Active Substance: LITHIUM
     Dosage: UNK
  4. DEPAKOTE [Concomitant]
     Active Substance: DIVALPROEX SODIUM
  5. BENZTROPINE. [Concomitant]
     Active Substance: BENZTROPINE
  6. INVEGA SUSTENNA [Concomitant]
     Active Substance: PALIPERIDONE PALMITATE

REACTIONS (4)
  - Somnolence [Unknown]
  - Antipsychotic drug level below therapeutic [Unknown]
  - Incontinence [Unknown]
  - Fall [Unknown]

NARRATIVE: CASE EVENT DATE: 2021
